FAERS Safety Report 15832624 (Version 12)
Quarter: 2019Q4

REPORT INFORMATION
  Report Type: Spontaneous
  Country: US (occurrence: US)
  Receive Date: 20190116
  Receipt Date: 20191227
  Transmission Date: 20200122
  Serious: Yes (Hospitalization)
  Sender: FDA-Public Use
  Company Number: US-ACTELION-A-US2018-184316

PATIENT
  Age: 73 Year
  Sex: Female

DRUGS (11)
  1. OPSUMIT [Suspect]
     Active Substance: MACITENTAN
     Indication: PULMONARY HYPERTENSION
     Dosage: 10 MG, QD
     Route: 048
     Dates: start: 20181214
  2. METOPROLOL SUCCINATE. [Concomitant]
     Active Substance: METOPROLOL SUCCINATE
     Dosage: 25 MG, BID
  3. TIMOLOL VISION [Concomitant]
     Dosage: UNK, BID
  4. TADALAFIL. [Suspect]
     Active Substance: TADALAFIL
     Indication: PULMONARY ARTERIAL HYPERTENSION
     Dosage: 20 MG, 2-TABLETS, QD
     Route: 065
     Dates: start: 201812
  5. VALACYCLOVIR [Concomitant]
     Active Substance: VALACYCLOVIR HYDROCHLORIDE
     Dosage: UNK
  6. ASPIRIN. [Concomitant]
     Active Substance: ASPIRIN
     Dosage: 81 MG, QD
  7. DEXILANT [Concomitant]
     Active Substance: DEXLANSOPRAZOLE
     Dosage: 60 MG, QD
  8. FISH OIL [Concomitant]
     Active Substance: FISH OIL
     Dosage: 1200 MG, UNK
  9. REMODULIN [Suspect]
     Active Substance: TREPROSTINIL
     Indication: PRODUCT USED FOR UNKNOWN INDICATION
     Dosage: UNK
     Route: 065
  10. VALSARTAN. [Concomitant]
     Active Substance: VALSARTAN
     Dosage: 320 MG, QD
  11. VITAMIN D3 [Concomitant]
     Active Substance: CHOLECALCIFEROL
     Dosage: 2000 MG, BID

REACTIONS (29)
  - Fluid retention [Recovered/Resolved]
  - Dyspnoea [Recovered/Resolved with Sequelae]
  - Nausea [Unknown]
  - Cardiac failure congestive [Recovered/Resolved with Sequelae]
  - Pulmonary hypertension [Unknown]
  - Therapy change [Unknown]
  - Condition aggravated [Not Recovered/Not Resolved]
  - Menopausal symptoms [Not Recovered/Not Resolved]
  - Blood creatinine increased [Recovered/Resolved]
  - Headache [Recovered/Resolved]
  - Fluid overload [Recovered/Resolved]
  - Peripheral swelling [Not Recovered/Not Resolved]
  - Cerebrovascular accident [Recovered/Resolved]
  - Diarrhoea [Not Recovered/Not Resolved]
  - Concomitant disease aggravated [Recovered/Resolved]
  - Oedema peripheral [Recovered/Resolved with Sequelae]
  - Acute kidney injury [Recovered/Resolved]
  - Arthralgia [Not Recovered/Not Resolved]
  - Infusion site pain [Unknown]
  - Abdominal pain [Not Recovered/Not Resolved]
  - Pain in jaw [Not Recovered/Not Resolved]
  - Walking disability [Recovered/Resolved]
  - Swelling [Not Recovered/Not Resolved]
  - Pulmonary arterial pressure increased [Recovered/Resolved with Sequelae]
  - Balance disorder [Recovered/Resolved]
  - Migraine [Not Recovered/Not Resolved]
  - Infusion site inflammation [Not Recovered/Not Resolved]
  - Oedema [Recovered/Resolved]
  - Pulmonary arterial hypertension [Not Recovered/Not Resolved]

NARRATIVE: CASE EVENT DATE: 20181218
